FAERS Safety Report 4488173-6 (Version None)
Quarter: 2004Q4

REPORT INFORMATION
  Report Type: 
  Country: None (occurrence: None)
  Receive Date: 20041028
  Receipt Date: 20041018
  Transmission Date: 20050328
  Serious: Yes (Death, Other)
  Sender: FDA-Public Use
  Company Number: US-BRISTOL-MYERS SQUIBB COMPANY-12734067

PATIENT

DRUGS (4)
  1. DOXORUBICIN HCL [Suspect]
     Dosage: 96 HOUR INFUSION
  2. DEXRAZOXANE [Suspect]
     Dosage: 96 HOUR INFUSION
  3. LEUKINE [Concomitant]
  4. LEVOFLOXACIN [Concomitant]
     Route: 048

REACTIONS (9)
  - ANOREXIA [None]
  - CAECITIS [None]
  - FEBRILE NEUTROPENIA [None]
  - HYPOTENSION [None]
  - INFECTION [None]
  - NEUTROPENIA [None]
  - NEUTROPENIC SEPSIS [None]
  - STOMATITIS [None]
  - THROMBOCYTOPENIA [None]
